FAERS Safety Report 18056538 (Version 3)
Quarter: 2020Q3

REPORT INFORMATION
  Report Type: Spontaneous
  Country: US (occurrence: US)
  Receive Date: 20200722
  Receipt Date: 20200731
  Transmission Date: 20201103
  Serious: No
  Sender: FDA-Public Use
  Company Number: US-TRIS PHARMA, INC.-20US009024

PATIENT

DRUGS (2)
  1. QUILLIVANT XR [Suspect]
     Active Substance: METHYLPHENIDATE HYDROCHLORIDE
     Indication: ATTENTION DEFICIT HYPERACTIVITY DISORDER
     Dosage: 2 MILLILITER, QD
     Route: 048
     Dates: start: 2020, end: 2020
  2. QUILLIVANT XR [Suspect]
     Active Substance: METHYLPHENIDATE HYDROCHLORIDE
     Dosage: 2 MILLILITER, QD
     Route: 048

REACTIONS (5)
  - Agitation [Unknown]
  - Decreased appetite [Unknown]
  - Mood swings [Unknown]
  - Off label use [Unknown]
  - Aggression [Unknown]

NARRATIVE: CASE EVENT DATE: 2020
